APPROVED DRUG PRODUCT: VALSARTAN
Active Ingredient: VALSARTAN
Strength: 160MG
Dosage Form/Route: TABLET;ORAL
Application: A204011 | Product #003 | TE Code: AB
Applicant: AMNEAL PHARMACEUTICALS OF NEW YORK LLC
Approved: Jan 11, 2016 | RLD: No | RS: No | Type: RX